FAERS Safety Report 9535400 (Version 5)
Quarter: 2014Q2

REPORT INFORMATION
  Report Type: Spontaneous
  Country: US (occurrence: US)
  Receive Date: 20130918
  Receipt Date: 20140421
  Transmission Date: 20141212
  Serious: Yes (Hospitalization, Other)
  Sender: FDA-Public Use
  Company Number: US-009507513-1309USA005423

PATIENT
  Sex: Female
  Weight: 53.61 kg

DRUGS (10)
  1. FOSAMAX [Suspect]
     Indication: OSTEOPENIA
     Dosage: 10 MG, QD
     Route: 048
     Dates: start: 19980313
  2. FOSAMAX [Suspect]
     Indication: OSTEOPOROSIS
     Dosage: 70 MG, UNK
     Route: 048
     Dates: end: 20110810
  3. ALENDRONATE SODIUM [Suspect]
     Dosage: 70 MG, UNK
     Route: 048
  4. BONIVA [Suspect]
     Indication: OSTEOPOROSIS POSTMENOPAUSAL
     Dosage: UNK
     Dates: start: 20070519, end: 20110908
  5. BONIVA [Suspect]
     Indication: OSTEOPOROSIS PROPHYLAXIS
  6. VITAMINS (UNSPECIFIED) [Concomitant]
     Indication: ROUTINE HEALTH MAINTENANCE
     Dosage: 1 DF, QD
     Dates: start: 1980
  7. OMEGA-3 [Concomitant]
     Indication: ROUTINE HEALTH MAINTENANCE
     Dosage: 1 DF, QD
     Dates: start: 1980
  8. MEPROBAMATE [Concomitant]
     Indication: ANXIETY
     Dosage: UNK
     Dates: start: 20030210, end: 20100309
  9. MEPROBAMATE [Concomitant]
     Indication: NERVOUSNESS
  10. CLARITIN [Concomitant]
     Indication: HYPERSENSITIVITY
     Dosage: UNK
     Dates: start: 19980429

REACTIONS (44)
  - Femoral neck fracture [Unknown]
  - Fall [Unknown]
  - Hip arthroplasty [Unknown]
  - Cataract operation [Unknown]
  - Pleural effusion [Unknown]
  - White blood cell count increased [Unknown]
  - Atelectasis [Unknown]
  - Bone lesion [Unknown]
  - Low turnover osteopathy [Unknown]
  - Impaired healing [Unknown]
  - Hypertension [Unknown]
  - Pain [Unknown]
  - Blood folate decreased [Unknown]
  - Infection [Unknown]
  - Dementia Alzheimer^s type [Unknown]
  - Fracture [Unknown]
  - Bone disorder [Unknown]
  - Body height decreased [Unknown]
  - Oestrogen deficiency [Unknown]
  - Ear pain [Unknown]
  - Spinal osteoarthritis [Unknown]
  - Peripheral swelling [Recovering/Resolving]
  - Scoliosis [Unknown]
  - Cerumen impaction [Unknown]
  - Bladder prolapse [Unknown]
  - Haemorrhagic anaemia [Unknown]
  - Atrioventricular block first degree [Unknown]
  - Atelectasis [Unknown]
  - Hyponatraemia [Unknown]
  - Leukocytosis [Recovering/Resolving]
  - Hypomagnesaemia [Unknown]
  - Blood urea increased [Unknown]
  - Lymphadenopathy [Unknown]
  - Viral infection [Unknown]
  - Foot operation [Unknown]
  - Limb injury [Unknown]
  - Osteoarthritis [Unknown]
  - Ligament sprain [Recovering/Resolving]
  - Nasopharyngitis [Unknown]
  - Pyrexia [Unknown]
  - Pain in extremity [Recovering/Resolving]
  - Constipation [Unknown]
  - Muscle spasms [Unknown]
  - Blood calcium decreased [Unknown]
